FAERS Safety Report 8556683 (Version 3)
Quarter: 2012Q4

REPORT INFORMATION
  Report Type: 
  Country: US (occurrence: US)
  Receive Date: 20120510
  Receipt Date: 20120904
  Transmission Date: 20130627
  Serious: Yes (Hospitalization, Other)
  Sender: FDA-Public Use
  Company Number: US-ASTRAZENECA-2012SE28281

PATIENT
  Age: 78 Year
  Sex: Female
  Weight: 78.9 kg

DRUGS (8)
  1. NEXIUM [Suspect]
     Indication: GASTROOESOPHAGEAL REFLUX DISEASE
     Route: 048
  2. TOPROL XL [Suspect]
     Indication: HYPERTENSION
     Route: 048
  3. TOPROL XL [Suspect]
     Indication: HYPERTENSION
     Route: 048
  4. ASPIRIN [Concomitant]
     Route: 048
  5. COUMADIN [Concomitant]
  6. CARAFATE [Concomitant]
  7. ELAVIL [Concomitant]
  8. XANAX [Concomitant]

REACTIONS (6)
  - Thrombosis [Recovered/Resolved]
  - Ulcer [Unknown]
  - Gastrooesophageal reflux disease [Unknown]
  - Hypertension [Unknown]
  - Ocular hyperaemia [Unknown]
  - Swelling [Recovered/Resolved]
